FAERS Safety Report 8320838-8 (Version None)
Quarter: 2012Q2

REPORT INFORMATION
  Report Type: 
  Country: None (occurrence: None)
  Receive Date: 20120430
  Receipt Date: 20120423
  Transmission Date: 20120825
  Serious: Yes (Other)
  Sender: FDA-Public Use
  Company Number: PHHY2011CA107815

PATIENT
  Sex: Male

DRUGS (2)
  1. RAMIPRIL [Concomitant]
  2. SANDOSTATIN LAR [Suspect]
     Indication: NEUROENDOCRINE CARCINOMA METASTATIC
     Dosage: 30 MG, EVERY 4 WEEKS
     Route: 030
     Dates: start: 20101202

REACTIONS (3)
  - BLOOD PRESSURE INCREASED [None]
  - NEPHROLITHIASIS [None]
  - ARRHYTHMIA [None]
